FAERS Safety Report 8007678-4 (Version None)
Quarter: 2011Q4

REPORT INFORMATION
  Report Type: 
  Country: None (occurrence: None)
  Receive Date: 20111206
  Receipt Date: 20111128
  Transmission Date: 20120403
  Serious: Yes (Other)
  Sender: FDA-Public Use
  Company Number: 2011030445

PATIENT
  Age: 63 Year
  Sex: Male
  Weight: 83.9154 kg

DRUGS (18)
  1. SUPER R-LIPOIC (THIOCTIC ACID) [Concomitant]
  2. ACETYL L-CARNITIN (ACETYLCARNITINE) [Concomitant]
  3. CAL-MAG (CAL-MAG) [Concomitant]
  4. L-ARGININE (ARGININE HYDROCHLORIDE) [Concomitant]
  5. L-TYROSINE (TYROSINE) [Concomitant]
  6. GUAIFENESIN [Concomitant]
  7. FLECAINIDE ACETATE [Concomitant]
  8. MULTIVITAMIN (DAILY MULTIVITAMIN) [Concomitant]
  9. CO-Q10 (UBIDECARENONE) [Concomitant]
  10. HIZENTRA [Suspect]
     Indication: IMMUNODEFICIENCY COMMON VARIABLE
     Dosage: 12 G 1X/WEEK, (60 ML) 3-4 SITES OVER 1-2 HOURS SUBCUTANEOUS
     Route: 058
     Dates: start: 20111115
  11. ACETAMINOPHEN [Concomitant]
  12. HIZENTRA [Suspect]
     Indication: IMMUNODEFICIENCY COMMON VARIABLE
     Dosage: SUBCUTANEOUS
     Route: 058
     Dates: start: 20111018
  13. PRASTERONE [Concomitant]
  14. VITAMIN D [Concomitant]
  15. N-ACETYL L-CYSTEIN (ACETYLCYSTEINE) [Concomitant]
  16. WARFARIN SODIUM [Concomitant]
  17. NIACIN [Concomitant]
  18. ASCORBIC ACID [Concomitant]

REACTIONS (2)
  - MENTAL IMPAIRMENT [None]
  - COGNITIVE DISORDER [None]
